FAERS Safety Report 21673274 (Version 3)
Quarter: 2023Q2

REPORT INFORMATION
  Report Type: Spontaneous
  Country: US (occurrence: US)
  Receive Date: 20221202
  Receipt Date: 20230502
  Transmission Date: 20230722
  Serious: No
  Sender: FDA-Public Use
  Company Number: US-BRISTOL-MYERS SQUIBB COMPANY-2022-146795

PATIENT
  Age: 52 Year
  Sex: Female

DRUGS (2)
  1. ORENCIA [Suspect]
     Active Substance: ABATACEPT
     Indication: Rheumatoid arthritis
     Route: 058
     Dates: start: 202203
  2. ORENCIA [Suspect]
     Active Substance: ABATACEPT
     Indication: Arthropathy
     Route: 058
     Dates: start: 202209

REACTIONS (6)
  - Raynaud^s phenomenon [Unknown]
  - Arthropathy [Unknown]
  - Spinal disorder [Unknown]
  - Drug ineffective [Unknown]
  - Pain [Unknown]
  - Injury [Unknown]
